FAERS Safety Report 26183232 (Version 1)
Quarter: 2025Q4

REPORT INFORMATION
  Report Type: Spontaneous
  Country: GB (occurrence: GB)
  Receive Date: 20251221
  Receipt Date: 20251221
  Transmission Date: 20260117
  Serious: Yes (Hospitalization, Other)
  Sender: AUROBINDO
  Company Number: GB-MHRA-MIDB-9558a102-dcb9-49f9-ae22-613bca986de0

PATIENT
  Age: 59 Year
  Sex: Female

DRUGS (9)
  1. FUROSEMIDE [Suspect]
     Active Substance: FUROSEMIDE
     Indication: Product used for unknown indication
     Dosage: 20 MILLIGRAM, ONCE A DAY (IN MORNING. 14 TABLET- STARTED PRIOR TO ADMISSION, HELD DUE TO HYPONATRAEMIA)
     Route: 065
  2. RAMIPRIL [Concomitant]
     Active Substance: RAMIPRIL
     Indication: Product used for unknown indication
     Dosage: 2.5 MILLIGRAM, ONCE A DAY (2.5 MG CAPSULES ONE TO BE TAKEN EACH DAY AS PER HOSPITAL 28 CAPSULE)
     Route: 065
  3. Aspirin 75 mg dispersible tablets [Concomitant]
     Indication: Product used for unknown indication
     Dosage: 75 MILLIGRAM
     Route: 065
  4. Tresiba FlexTouch 200 units / ml solution for injection 3 ml pre - fil [Concomitant]
     Indication: Product used for unknown indication
     Dosage: 200 UNITS / ML SOLUTION FOR INJECTION 3 ML PRE - FILLED PENS - 16 UNITS OM
     Route: 065
  5. Adcal 1500 mg chewable tablets [Concomitant]
     Indication: Product used for unknown indication
     Dosage: 1500 MILLIGRAM
     Route: 065
  6. Rosuvastatin 20 mg tablets [Concomitant]
     Indication: Product used for unknown indication
     Dosage: 20 MILLIGRAM, ONCE A DAY
     Route: 065
  7. NICOTINE [Concomitant]
     Active Substance: NICOTINE
     Indication: Product used for unknown indication
     Dosage: OTHER/OTC: NICOTINE PATCHES
     Route: 065
  8. Lyumjev KwikPen 100 units / ml solution for injection 3 ml pre - fille [Concomitant]
     Indication: Product used for unknown indication
     Dosage: 100 UNITS / ML SOLUTION FOR INJECTION 3 ML PRE - FILLED PENS 6 UNITS OM, 5 UNITS LU, 8 UNITS TEA
     Route: 065
  9. Lansoprazole 30 mg gastro - resistant capsules [Concomitant]
     Indication: Product used for unknown indication
     Dosage: 30 MG GASTRO - RESISTANT CAPSULES 1 TBL OM - STATES TAKING BD
     Route: 065

REACTIONS (1)
  - Hyponatraemia [Unknown]
